FAERS Safety Report 19784378 (Version 1)
Quarter: 2021Q3

REPORT INFORMATION
  Report Type: Spontaneous
  Country: US (occurrence: US)
  Receive Date: 20210903
  Receipt Date: 20210903
  Transmission Date: 20211014
  Serious: Yes (Disabling)
  Sender: FDA-Public Use
  Company Number: None

PATIENT
  Age: 58 Year
  Sex: Female
  Weight: 90 kg

DRUGS (3)
  1. 1/2MG LORAZEPAM [Concomitant]
  2. CYANOCOBALAMIN 1MG INJECTION 1X A WEEK [Concomitant]
  3. TOPCARE SLEEP AID NIGHTTIME [Suspect]
     Active Substance: DIPHENHYDRAMINE HYDROCHLORIDE
     Indication: SLEEP DISORDER THERAPY
     Dosage: ?          QUANTITY:2 CAPLETS;?
     Route: 048
     Dates: start: 20210825, end: 20210825

REACTIONS (5)
  - Hallucination [None]
  - Sluggishness [None]
  - Mood swings [None]
  - Vision blurred [None]
  - Feeling abnormal [None]

NARRATIVE: CASE EVENT DATE: 20120825
